FAERS Safety Report 7867565-9 (Version None)
Quarter: 2011Q4

REPORT INFORMATION
  Report Type: 
  Country: None (occurrence: None)
  Receive Date: 20111028
  Receipt Date: 20111020
  Transmission Date: 20120403
  Serious: Yes (Hospitalization)
  Sender: FDA-Public Use
  Company Number: PHHY2011EC93549

PATIENT
  Sex: Female

DRUGS (1)
  1. TRILEPTAL [Suspect]
     Indication: EPILEPSY
     Dosage: 300 MG, BID
     Route: 048
     Dates: start: 20030101, end: 20111014

REACTIONS (7)
  - HYPONATRAEMIA [None]
  - COORDINATION ABNORMAL [None]
  - TREMOR [None]
  - ABDOMINAL DISCOMFORT [None]
  - HEADACHE [None]
  - SOMNOLENCE [None]
  - NAUSEA [None]
